FAERS Safety Report 8508609-0 (Version None)
Quarter: 2012Q3

REPORT INFORMATION
  Report Type: 
  Country: None (occurrence: None)
  Receive Date: 20120713
  Receipt Date: 20120710
  Transmission Date: 20120928
  Serious: No
  Sender: FDA-Public Use
  Company Number: US-PFIZER INC-2012165517

PATIENT
  Sex: Female
  Weight: 57.143 kg

DRUGS (2)
  1. LOMOTIL [Concomitant]
     Indication: COELIAC DISEASE
     Dosage: UNK
  2. IBUPROFEN (ADVIL) [Suspect]
     Indication: PAIN
     Dosage: 200 MG, AS NEEDED
     Route: 048
     Dates: end: 20120701

REACTIONS (4)
  - TOOTH DISORDER [None]
  - DIARRHOEA [None]
  - NAUSEA [None]
  - VOMITING [None]
